FAERS Safety Report 7431957-2 (Version None)
Quarter: 2011Q2

REPORT INFORMATION
  Report Type: 
  Country: None (occurrence: None)
  Receive Date: 20110419
  Receipt Date: 20110419
  Transmission Date: 20111010
  Serious: No
  Sender: FDA-Public Use
  Company Number: None

PATIENT
  Sex: Female
  Weight: 79.3795 kg

DRUGS (1)
  1. METRONIDAZOLE [Suspect]
     Indication: CLOSTRIDIUM TEST POSITIVE
     Dosage: 1 TABLET 3X DAILY PO
     Route: 048

REACTIONS (9)
  - FEELING ABNORMAL [None]
  - ERYTHEMA [None]
  - PRURITUS [None]
  - NEUROPATHY PERIPHERAL [None]
  - BURNING SENSATION [None]
  - POISONING [None]
  - HYPERSENSITIVITY [None]
  - DYSGEUSIA [None]
  - ABDOMINAL DISCOMFORT [None]
